FAERS Safety Report 6844840-8 (Version None)
Quarter: 2010Q3

REPORT INFORMATION
  Report Type: 
  Country: None (occurrence: None)
  Receive Date: 20100715
  Receipt Date: 20100706
  Transmission Date: 20110219
  Serious: Yes (Other)
  Sender: FDA-Public Use
  Company Number: US-JNJFOC-20100503447

PATIENT
  Sex: Male
  Weight: 16.78 kg

DRUGS (14)
  1. CONCENTRATED TYLENOL INFANT DROPS [Suspect]
     Route: 065
  2. CONCENTRATED TYLENOL INFANT DROPS [Suspect]
     Indication: PRODUCT USED FOR UNKNOWN INDICATION
     Route: 065
  3. CONCENTRATED TYLENOL INFANT DROPS [Suspect]
     Route: 065
  4. CONCENTRATED TYLENOL INFANT DROPS [Suspect]
     Indication: PRODUCT USED FOR UNKNOWN INDICATION
     Route: 065
  5. CHILDREN'S TYLENOL SUSPENSION [Suspect]
     Indication: PYREXIA
     Route: 065
  6. CHILDREN'S TYLENOL SUSPENSION [Suspect]
     Indication: ANALGESIC THERAPY
     Route: 065
  7. CHILDREN'S MOTRIN [Suspect]
     Route: 065
  8. CHILDREN'S MOTRIN [Suspect]
     Indication: PRODUCT USED FOR UNKNOWN INDICATION
     Route: 065
  9. CONCENTRATED TYLENOL INFANT DROPS [Suspect]
     Route: 065
  10. CONCENTRATED TYLENOL INFANT DROPS [Suspect]
     Indication: PRODUCT USED FOR UNKNOWN INDICATION
     Route: 065
  11. CHILDREN'S MOTRIN [Suspect]
     Route: 065
  12. CHILDREN'S MOTRIN [Suspect]
     Indication: PRODUCT USED FOR UNKNOWN INDICATION
     Route: 065
  13. ZYRTEC [Suspect]
     Indication: PRODUCT USED FOR UNKNOWN INDICATION
  14. CEFDINIR [Concomitant]
     Indication: PROPHYLAXIS
     Dosage: 3/4 TEASPOON A DAY FOR 10 DAYS
     Route: 065

REACTIONS (3)
  - DYSPNOEA [None]
  - PRODUCT QUALITY ISSUE [None]
  - WHEEZING [None]
